FAERS Safety Report 9356551 (Version 1)
Quarter: 2013Q2

REPORT INFORMATION
  Report Type: Spontaneous
  Country: NL (occurrence: NL)
  Receive Date: 20130619
  Receipt Date: 20130619
  Transmission Date: 20140414
  Serious: Yes (Other)
  Sender: FDA-Public Use
  Company Number: NL-B.I. PHARMACEUTICALS,INC./RIDGEFIELD-2013-NL-00444NL

PATIENT
  Sex: Male

DRUGS (5)
  1. PRADAXA [Suspect]
     Indication: ATRIAL FIBRILLATION
     Dosage: 300 MG
  2. AMIODARON [Concomitant]
     Dosage: 200 MG
  3. METOPROLOL [Concomitant]
  4. FUROSEMIDE [Concomitant]
  5. SPIRONOLACTON [Concomitant]

REACTIONS (1)
  - Cardiac operation [Unknown]
